FAERS Safety Report 4822558-0 (Version None)
Quarter: 2005Q4

REPORT INFORMATION
  Report Type: 
  Country: None (occurrence: None)
  Receive Date: 20051104
  Receipt Date: 20051026
  Transmission Date: 20060501
  Serious: Yes (Hospitalization, Other)
  Sender: FDA-Public Use
  Company Number: 2005-08-2215

PATIENT
  Age: 45 Year
  Sex: Male
  Weight: 76 kg

DRUGS (2)
  1. PEG-INTRON [Suspect]
     Indication: HEPATITIS C
     Dosage: 120 MCG QW SUBCUTANEOUS
     Route: 058
     Dates: start: 20050609, end: 20050805
  2. REBETOL [Suspect]
     Indication: HEPATITIS C
     Dosage: 800 MG ORAL
     Route: 048
     Dates: start: 20050609, end: 20050812

REACTIONS (7)
  - ALANINE AMINOTRANSFERASE INCREASED [None]
  - ASPARTATE AMINOTRANSFERASE INCREASED [None]
  - DECREASED APPETITE [None]
  - HEPAPLASTIN DECREASED [None]
  - MALAISE [None]
  - PROTHROMBIN TIME PROLONGED [None]
  - STOMATITIS [None]
